FAERS Safety Report 12126791 (Version 6)
Quarter: 2016Q3

REPORT INFORMATION
  Report Type: Report from Study
  Country: DE (occurrence: DE)
  Receive Date: 20160229
  Receipt Date: 20160714
  Transmission Date: 20161109
  Serious: Yes (Death, Hospitalization)
  Sender: FDA-Public Use
  Company Number: DE-AMGEN-DEUNI2015041412

PATIENT
  Age: 49 Year
  Sex: Male

DRUGS (11)
  1. PANITUMUMAB [Suspect]
     Active Substance: PANITUMUMAB
     Indication: COLON CANCER METASTATIC
     Dosage: 690 MG, Q2WK
     Route: 042
     Dates: start: 20150218
  2. PANITUMUMAB [Suspect]
     Active Substance: PANITUMUMAB
     Dosage: 700 UNK, UNK
     Route: 042
  3. RIBOFLUOR [Concomitant]
     Active Substance: FLUOROURACIL
     Indication: COLON CANCER METASTATIC
     Dosage: 2400 MG/M2, Q2WK
     Route: 042
     Dates: start: 20150121, end: 20160208
  4. PANITUMUMAB [Suspect]
     Active Substance: PANITUMUMAB
     Dosage: UNK
     Route: 042
  5. IRINOTECAN [Concomitant]
     Active Substance: IRINOTECAN
     Dosage: 188 UNK, QWK
     Route: 042
     Dates: start: 20151028
  6. PANITUMUMAB [Suspect]
     Active Substance: PANITUMUMAB
     Dosage: 590 UNK, UNK
     Route: 042
  7. 5-FU [Concomitant]
     Active Substance: FLUOROURACIL
     Indication: COLON CANCER METASTATIC
     Dosage: 6084 MG, UNK
     Route: 042
     Dates: start: 20150121, end: 20160208
  8. PANITUMUMAB [Suspect]
     Active Substance: PANITUMUMAB
     Dosage: 590 UNK, UNK
     Route: 042
  9. CALCIUM FOLINATE W/FLUOROURACIL [Concomitant]
     Indication: COLON CANCER METASTATIC
     Dosage: 75 UNK, UNK
     Route: 042
     Dates: start: 20150513
  10. MEDOXA [Concomitant]
     Indication: COLON CANCER METASTATIC
     Dosage: 234 MG/M2, Q2WK
     Route: 042
     Dates: start: 20150121, end: 20160208
  11. RIBOFOLIN [Concomitant]
     Indication: COLON CANCER METASTATIC
     Dosage: 400 MG/M2, Q2WK
     Route: 042
     Dates: start: 20150121, end: 20160208

REACTIONS (2)
  - Rash [Not Recovered/Not Resolved]
  - Colon cancer [Fatal]

NARRATIVE: CASE EVENT DATE: 20150225
